FAERS Safety Report 6044292-4 (Version None)
Quarter: 2009Q1

REPORT INFORMATION
  Report Type: 
  Country: None (occurrence: None)
  Receive Date: 20090120
  Receipt Date: 20080519
  Transmission Date: 20090719
  Serious: No
  Sender: FDA-Public Use
  Company Number: US-BAYER-200812250BCC

PATIENT
  Age: 72 Year
  Sex: Female
  Weight: 77 kg

DRUGS (5)
  1. ALEVE (CAPLET) [Suspect]
     Indication: ANALGESIA
     Dosage: TOTAL DAILY DOSE: 220 MG  UNIT DOSE: 220 MG
     Route: 048
     Dates: start: 20080519
  2. PREMARIN [Concomitant]
  3. MULTI-VITAMIN [Concomitant]
     Route: 048
  4. CALCIUM SUPPLEMENT [Concomitant]
     Route: 065
  5. DIOVAN [Concomitant]
     Route: 048

REACTIONS (1)
  - INJECTION SITE HAEMORRHAGE [None]
